FAERS Safety Report 8248110-5 (Version None)
Quarter: 2012Q1

REPORT INFORMATION
  Report Type: 
  Country: None (occurrence: None)
  Receive Date: 20120330
  Receipt Date: 20120328
  Transmission Date: 20120608
  Serious: Yes (Other)
  Sender: FDA-Public Use
  Company Number: US-BAYER-2012-031045

PATIENT
  Age: 50 Year
  Sex: Male

DRUGS (1)
  1. MAGNEVIST [Suspect]
     Indication: NUCLEAR MAGNETIC RESONANCE IMAGING BRAIN
     Dosage: 18 ML, UNK
     Route: 042
     Dates: start: 20120326

REACTIONS (5)
  - CHEST DISCOMFORT [None]
  - GLOSSODYNIA [None]
  - HEADACHE [None]
  - DYSPNOEA [None]
  - DYSGEUSIA [None]
